FAERS Safety Report 26022393 (Version 1)
Quarter: 2025Q4

REPORT INFORMATION
  Report Type: Spontaneous
  Country: US (occurrence: US)
  Receive Date: 20251110
  Receipt Date: 20251110
  Transmission Date: 20260117
  Serious: No
  Sender: JOHNSON AND JOHNSON
  Company Number: US-VIIV HEALTHCARE-US2025AMR144016

PATIENT
  Sex: Male
  Weight: 90.703 kg

DRUGS (4)
  1. CABENUVA [Suspect]
     Active Substance: CABOTEGRAVIR\RILPIVIRINE
     Indication: HIV infection
     Dosage: 3 ML, 600MG CABOTEGRAVIR AND 900MG RILPIVIRINE  Q4W FOR 2 DOSES THEN EVERY 8 WEEKS THEREAFTER
     Route: 030
  2. CABOTEGRAVIR [Suspect]
     Active Substance: CABOTEGRAVIR
     Indication: HIV infection
     Dosage: 3 ML, 600MG CABOTEGRAVIR AND 900MG RILPIVIRINE Q4W FOR 2 DOSES THEN EVERY 8 WEEKS THEREAFTER
     Route: 030
  3. BIOTIN [Concomitant]
     Active Substance: BIOTIN
     Indication: Product used for unknown indication
     Dosage: 10 MG
  4. IBUPROFEN [Concomitant]
     Active Substance: IBUPROFEN
     Indication: Product used for unknown indication
     Dosage: 200 MG

REACTIONS (2)
  - Injection site reaction [Recovered/Resolved]
  - Myalgia [Recovered/Resolved]
